FAERS Safety Report 6884248-2 (Version None)
Quarter: 2010Q3

REPORT INFORMATION
  Report Type: 
  Country: None (occurrence: None)
  Receive Date: 20100729
  Receipt Date: 20070710
  Transmission Date: 20110219
  Serious: Yes (Other)
  Sender: FDA-Public Use
  Company Number: US-PFIZER INC-2007045755

PATIENT
  Sex: Female

DRUGS (2)
  1. CELEBREX [Suspect]
     Indication: KNEE OPERATION
     Dates: start: 20070209
  2. COUMADIN [Concomitant]

REACTIONS (2)
  - PAIN [None]
  - RASH [None]
